FAERS Safety Report 9245791 (Version 7)
Quarter: 2016Q1

REPORT INFORMATION
  Report Type: Spontaneous
  Country: US (occurrence: US)
  Receive Date: 20130422
  Receipt Date: 20160330
  Transmission Date: 20160526
  Serious: No
  Sender: FDA-Public Use
  Company Number: US-009507513-1112USA02606

PATIENT
  Sex: Male

DRUGS (3)
  1. PROPECIA [Suspect]
     Active Substance: FINASTERIDE
     Indication: ANDROGENETIC ALOPECIA
  2. PROPECIA [Suspect]
     Active Substance: FINASTERIDE
     Indication: ALOPECIA
     Dosage: 1 MG, QD
     Route: 048
     Dates: start: 20100713, end: 20110727
  3. RITALIN [Concomitant]
     Active Substance: METHYLPHENIDATE HYDROCHLORIDE
     Indication: AUTISM
     Dosage: UNK, UNKNOWN
     Route: 065
     Dates: start: 2008

REACTIONS (19)
  - Penile size reduced [Unknown]
  - Drug ineffective [Unknown]
  - Amnesia [Unknown]
  - Urine flow decreased [Unknown]
  - Headache [Recovered/Resolved]
  - Cognitive disorder [Unknown]
  - Sexual dysfunction [Not Recovered/Not Resolved]
  - Attention deficit/hyperactivity disorder [Unknown]
  - Paraesthesia [Recovered/Resolved]
  - Anxiety [Unknown]
  - Urinary tract obstruction [Unknown]
  - Diarrhoea [Unknown]
  - Depression [Unknown]
  - Prostatitis [Unknown]
  - Headache [Recovered/Resolved]
  - Drug ineffective [Unknown]
  - Paraesthesia [Recovered/Resolved]
  - Terminal dribbling [Unknown]
  - Erectile dysfunction [Unknown]

NARRATIVE: CASE EVENT DATE: 2010
